FAERS Safety Report 24571887 (Version 1)
Quarter: 2024Q4

REPORT INFORMATION
  Report Type: Spontaneous
  Country: BE (occurrence: BE)
  Receive Date: 20241101
  Receipt Date: 20241101
  Transmission Date: 20250114
  Serious: Yes (Other)
  Sender: B BRAUN
  Company Number: BE-B.Braun Medical Inc.-2164216

PATIENT
  Age: 18 Year
  Sex: Female

DRUGS (3)
  1. ACETAMINOPHEN [Suspect]
     Active Substance: ACETAMINOPHEN
  2. BENZETHONIUM CHLORIDE\CHLORHEXIDINE GLUCONATE [Suspect]
     Active Substance: BENZETHONIUM CHLORIDE\CHLORHEXIDINE GLUCONATE
  3. IPRATROPIUM BROMIDE\XYLOMETAZOLINE HYDROCHLORIDE [Suspect]
     Active Substance: IPRATROPIUM BROMIDE\XYLOMETAZOLINE HYDROCHLORIDE

REACTIONS (4)
  - Peripheral swelling [Recovered/Resolved]
  - Erythema [Recovered/Resolved]
  - Hypersensitivity [Recovered/Resolved]
  - Dyspnoea [Recovered/Resolved]
